FAERS Safety Report 16143435 (Version 6)
Quarter: 2020Q2

REPORT INFORMATION
  Report Type: Spontaneous
  Country: JP (occurrence: JP)
  Receive Date: 20190401
  Receipt Date: 20200403
  Transmission Date: 20200713
  Serious: Yes (Hospitalization, Other)
  Sender: FDA-Public Use
  Company Number: JP-BRISTOL-MYERS SQUIBB COMPANY-BMS-2019-031071

PATIENT
  Age: 82 Year
  Sex: Male
  Weight: 71 kg

DRUGS (2)
  1. YERVOY [Suspect]
     Active Substance: IPILIMUMAB
     Indication: METASTATIC RENAL CELL CARCINOMA
     Dosage: 71 MILLIGRAM (1MG/KG), Q3WK
     Route: 041
     Dates: start: 20190220, end: 20190220
  2. OPDIVO [Suspect]
     Active Substance: NIVOLUMAB
     Indication: METASTATIC RENAL CELL CARCINOMA
     Dosage: 240 MG, Q3W
     Route: 041
     Dates: start: 20190220, end: 20190220

REACTIONS (9)
  - Atrioventricular block complete [Recovered/Resolved]
  - Prescribed overdose [Unknown]
  - Hypothyroidism [Unknown]
  - Malaise [Recovering/Resolving]
  - Renal disorder [Unknown]
  - Myocarditis [Recovered/Resolved]
  - Type 2 diabetes mellitus [Unknown]
  - Rash [Recovering/Resolving]
  - Liver disorder [Recovered/Resolved]

NARRATIVE: CASE EVENT DATE: 20190222
